FAERS Safety Report 12094801 (Version 4)
Quarter: 2016Q4

REPORT INFORMATION
  Report Type: Report from Study
  Country: CA (occurrence: CA)
  Receive Date: 20160219
  Receipt Date: 20161213
  Transmission Date: 20170206
  Serious: Yes (Other)
  Sender: FDA-Public Use
  Company Number: CA-TAKEDA-2016TUS002570

PATIENT
  Age: 68 Year
  Sex: Female

DRUGS (18)
  1. VEDOLIZUMAB [Suspect]
     Active Substance: VEDOLIZUMAB
     Indication: CROHN^S DISEASE
     Dosage: 300 MG, UNK
     Route: 042
     Dates: start: 20150716
  2. PROLIA [Concomitant]
     Active Substance: DENOSUMAB
     Dosage: 60 MG, 2/WEEK
  3. BENADRYL [Concomitant]
     Active Substance: DIPHENHYDRAMINE HYDROCHLORIDE
     Dosage: UNK
  4. VIBRAMYCINE [Concomitant]
     Dosage: UNK
     Dates: start: 20160216, end: 20160226
  5. BIOCAL D [Concomitant]
     Dosage: UNK UNK, BID
  6. VOLTAREN [Concomitant]
     Active Substance: DICLOFENAC SODIUM
     Dosage: UNK
  7. EPIPEN [Concomitant]
     Active Substance: EPINEPHRINE
     Dosage: UNK
  8. ENTOCORT [Concomitant]
     Active Substance: BUDESONIDE
     Dosage: 3 MG, TID
  9. LYRICA [Concomitant]
     Active Substance: PREGABALIN
     Dosage: 25 MG, UNK
  10. PENTASA [Concomitant]
     Active Substance: MESALAMINE
     Dosage: 500 MG, BID
  11. VENTOLIN [Concomitant]
     Active Substance: ALBUTEROL SULFATE
     Dosage: 100 MG, UNK
  12. VITAMIN B12 [Concomitant]
     Active Substance: CYANOCOBALAMIN
     Dosage: 1000 ?G, MONTHLY
     Route: 050
  13. ACETAMINOPHEN. [Concomitant]
     Active Substance: ACETAMINOPHEN
     Dosage: 500 MG, QID
  14. NYSTATIN. [Concomitant]
     Active Substance: NYSTATIN
     Dosage: UNK
  15. NEXIUM [Concomitant]
     Active Substance: ESOMEPRAZOLE MAGNESIUM
     Dosage: 40 MG, BID
  16. NASONEX [Concomitant]
     Active Substance: MOMETASONE FUROATE
     Dosage: 500 MG, QD
  17. MYOFLEX                            /00021207/ [Concomitant]
     Dosage: UNK
  18. SYNTHROID [Concomitant]
     Active Substance: LEVOTHYROXINE SODIUM
     Dosage: 0.125 MG, QD

REACTIONS (7)
  - Diarrhoea [Unknown]
  - Sinusitis [Unknown]
  - Pulmonary congestion [Unknown]
  - Off label use [Unknown]
  - Influenza [Unknown]
  - Upper respiratory tract infection [Unknown]
  - Sputum discoloured [Unknown]

NARRATIVE: CASE EVENT DATE: 20150716
